FAERS Safety Report 25750799 (Version 1)
Quarter: 2025Q3

REPORT INFORMATION
  Report Type: Spontaneous
  Country: GB (occurrence: GB)
  Receive Date: 20250902
  Receipt Date: 20250902
  Transmission Date: 20251021
  Serious: Yes (Death)
  Sender: ROCHE
  Company Number: None

PATIENT
  Age: 69 Year

DRUGS (21)
  1. MYCOPHENOLATE MOFETIL [Suspect]
     Active Substance: MYCOPHENOLATE MOFETIL
     Indication: Product used for unknown indication
     Route: 048
  2. ATORVASTATIN CALCIUM [Concomitant]
     Active Substance: ATORVASTATIN CALCIUM
     Route: 048
  3. FUROSEMIDE [Concomitant]
     Active Substance: FUROSEMIDE
     Route: 048
  4. Lansoprazole 30 mg gastro - resistant capsules [Concomitant]
  5. Salamol 100 micrograms / dose inhaler CFC free (Teva UK Ltd) [Concomitant]
  6. AMLODIPINE [Concomitant]
     Active Substance: AMLODIPINE BESYLATE
     Route: 048
  7. Bisoprolol 10 mg tablets [Concomitant]
     Route: 048
  8. DIAZEPAM [Concomitant]
     Active Substance: DIAZEPAM
     Route: 048
  9. Ferrous sulfate 200 mg tablets [Concomitant]
     Route: 048
  10. Levothyroxine sodium 100 microgram tablets [Concomitant]
     Route: 048
  11. Colecalciferol 400 unit / Calcium carbonate 1.5 g chewable tablets [Concomitant]
     Route: 048
  12. Colecalciferol 400 unit / Calcium carbonate 1.5 g chewable tablets [Concomitant]
  13. Mirabegron 25 mg modified - release tablets [Concomitant]
  14. Prednisolone 5 mg tablets [Concomitant]
     Route: 048
  15. Aripiprazole 10 mg tablets [Concomitant]
     Route: 048
  16. DOXAZOSIN [Concomitant]
     Active Substance: DOXAZOSIN MESYLATE
     Route: 048
  17. Quinine sulfate 300 mg tablets [Concomitant]
     Route: 048
  18. Ropinirole 2 mg tablets [Concomitant]
     Route: 048
  19. Solifenacin 10 mg tablets [Concomitant]
     Route: 048
  20. FEXOFENADINE HYDROCHLORIDE [Concomitant]
     Active Substance: FEXOFENADINE HYDROCHLORIDE
     Route: 048
  21. ACETAMINOPHEN [Concomitant]
     Active Substance: ACETAMINOPHEN
     Route: 048

REACTIONS (1)
  - Pneumonitis [Fatal]
